FAERS Safety Report 10007126 (Version 1)
Quarter: 2014Q1

REPORT INFORMATION
  Report Type: Spontaneous
  Country: US (occurrence: None)
  Receive Date: 20140312
  Receipt Date: 20140312
  Transmission Date: 20141002
  Serious: Yes (Disabling)
  Sender: FDA-Public Use
  Company Number: None

PATIENT
  Age: 60 Year
  Sex: Male
  Weight: 122.47 kg

DRUGS (1)
  1. TESTIM [Suspect]
     Indication: DRUG THERAPY
     Dosage: 1 TUBE APPLIED TO A SURFACE, USUALLY THE SKIN
     Route: 061

REACTIONS (4)
  - Cerebrovascular accident [None]
  - Abasia [None]
  - Headache [None]
  - Dizziness [None]
